FAERS Safety Report 12686359 (Version 1)
Quarter: 2016Q3

REPORT INFORMATION
  Report Type: Spontaneous
  Country: US (occurrence: US)
  Receive Date: 20160825
  Receipt Date: 20160825
  Transmission Date: 20161109
  Serious: No
  Sender: FDA-Public Use
  Company Number: US-NOVOPROD-463502

PATIENT
  Age: 77 Year
  Sex: Female

DRUGS (1)
  1. VICTOZA [Suspect]
     Active Substance: LIRAGLUTIDE
     Indication: PRODUCT USED FOR UNKNOWN INDICATION
     Dosage: 0.2 MG, QD
     Route: 058
     Dates: start: 20150902

REACTIONS (7)
  - Abdominal discomfort [Unknown]
  - Oesophageal pain [Unknown]
  - Throat irritation [Unknown]
  - Hiccups [Unknown]
  - Off label use [Unknown]
  - Blood glucose decreased [Unknown]
  - Vomiting [Unknown]

NARRATIVE: CASE EVENT DATE: 20150902
